FAERS Safety Report 7579049-6 (Version None)
Quarter: 2011Q2

REPORT INFORMATION
  Report Type: 
  Country: None (occurrence: None)
  Receive Date: 20110628
  Receipt Date: 20110617
  Transmission Date: 20111010
  Serious: Yes (Hospitalization)
  Sender: FDA-Public Use
  Company Number: PHHY2011PL54428

PATIENT
  Age: 9 Year
  Sex: Female

DRUGS (1)
  1. LAMOTRIGINE [Suspect]
     Indication: EPILEPSY

REACTIONS (15)
  - HISTIOCYTOSIS [None]
  - GENERAL PHYSICAL HEALTH DETERIORATION [None]
  - ANAEMIA [None]
  - RASH MACULAR [None]
  - DYSPNOEA [None]
  - UNRESPONSIVE TO STIMULI [None]
  - HYPERAESTHESIA [None]
  - HEPATOMEGALY [None]
  - NEUTROPENIA [None]
  - PYREXIA [None]
  - VOMITING [None]
  - ASCITES [None]
  - HEPATIC ENZYME INCREASED [None]
  - HISTIOCYTOSIS HAEMATOPHAGIC [None]
  - RASH [None]
